FAERS Safety Report 11565883 (Version 1)
Quarter: 2015Q3

REPORT INFORMATION
  Report Type: Spontaneous
  Country: US (occurrence: US)
  Receive Date: 20150916
  Receipt Date: 20150916
  Transmission Date: 20151125
  Serious: No
  Sender: FDA-Public Use
  Company Number: US-ELI_LILLY_AND_COMPANY-US200905002979

PATIENT
  Age: 77 Year
  Sex: Female

DRUGS (4)
  1. AZOR [Concomitant]
     Active Substance: AMLODIPINE BESYLATE\OLMESARTAN MEDOXOMIL
     Indication: HYPERTENSION
  2. FORTEO [Suspect]
     Active Substance: TERIPARATIDE
  3. LASIX [Concomitant]
     Active Substance: FUROSEMIDE
  4. VITAMIN D3 [Concomitant]
     Active Substance: CHOLECALCIFEROL
     Dosage: 10000 U, WEEKLY (1/W)

REACTIONS (6)
  - Asthenia [Unknown]
  - Discomfort [Unknown]
  - Hypothyroidism [Unknown]
  - Blood calcium increased [Not Recovered/Not Resolved]
  - Muscular weakness [Unknown]
  - Fatigue [Unknown]

NARRATIVE: CASE EVENT DATE: 20090507
